FAERS Safety Report 5034620-0 (Version None)
Quarter: 2006Q2

REPORT INFORMATION
  Report Type: 
  Country: None (occurrence: None)
  Receive Date: 20060621
  Receipt Date: 20060605
  Transmission Date: 20061013
  Serious: Yes (Other)
  Sender: FDA-Public Use
  Company Number: JP-2005-025134

PATIENT
  Age: 32 Year
  Sex: Female

DRUGS (21)
  1. BETASERON [Suspect]
     Indication: RELAPSING-REMITTING MULTIPLE SCLEROSIS
     Dosage: 4 MIU, EVERY 2D, SUBCUTANEOUS; 8 MIU, EVERY 2D, SUBCUTANEOUS
     Route: 058
     Dates: start: 20010307, end: 20010311
  2. BETASERON [Suspect]
     Indication: RELAPSING-REMITTING MULTIPLE SCLEROSIS
     Dosage: 4 MIU, EVERY 2D, SUBCUTANEOUS; 8 MIU, EVERY 2D, SUBCUTANEOUS
     Route: 058
     Dates: start: 20010313, end: 20030306
  3. BETASERON [Suspect]
     Indication: RELAPSING-REMITTING MULTIPLE SCLEROSIS
     Dosage: 4 MIU, EVERY 2D, SUBCUTANEOUS; 8 MIU, EVERY 2D, SUBCUTANEOUS
     Route: 058
     Dates: start: 20040307, end: 20050519
  4. PREDONINE [Concomitant]
  5. DEPAS [Concomitant]
  6. LOXONIN                          (LOXOPROFEN SODIUM) TABLET [Concomitant]
  7. ADETPHOS                     (ADENOSINE TRIPHOSPHATE, DISODIUM SALT) [Concomitant]
  8. METHYCOBAL              (MECOBALAMIN) [Concomitant]
  9. PHENOBAL                       10% (PHENOBARBITAL) POWDER [Concomitant]
  10. TRYPTANOL [Concomitant]
  11. MEILAX                   (ETHYL LOFLAZEPATE) [Concomitant]
  12. LENDORM [Concomitant]
  13. FAMOTIDINE [Concomitant]
  14. MAALOX                (MAGNESIUM HYDROXIDE, ALUMINIUM HYDROXIDE GEL) [Concomitant]
  15. PL GRAN          (PROMETHAZINE METHYLENE DISALICYLATE, SALICYLAMIDE) [Concomitant]
  16. ISODINE       GARGLE        (POVIDONE-IODINE) SOLUTION [Concomitant]
  17. MINOCYCLINE HCL [Concomitant]
  18. CINAL                 TABLET [Concomitant]
  19. CALCIUM LACTATE            (CALCIUM LACTATE) [Concomitant]
  20. ALFAROL         (ALFACALCIDOL) [Concomitant]
  21. MUCOSTA          (REBAMIPIDE) [Concomitant]

REACTIONS (3)
  - CONDITION AGGRAVATED [None]
  - RELAPSING-REMITTING MULTIPLE SCLEROSIS [None]
  - THYROID NEOPLASM [None]
